FAERS Safety Report 26141269 (Version 1)
Quarter: 2025Q4

REPORT INFORMATION
  Report Type: Spontaneous
  Country: US (occurrence: US)
  Receive Date: 20251210
  Receipt Date: 20251210
  Transmission Date: 20260117
  Serious: Yes (Hospitalization, Other)
  Sender: SPECGX
  Company Number: US-SPECGX-T202501962

PATIENT
  Age: 65 Year
  Sex: Male

DRUGS (3)
  1. METHADONE [Suspect]
     Active Substance: METHADONE HYDROCHLORIDE
     Indication: Drug withdrawal maintenance therapy
     Dosage: 270 MILLIGRAM, QD
     Route: 065
  2. NALTREXONE [Suspect]
     Active Substance: NALTREXONE
     Indication: Alcohol use disorder
     Dosage: UNK (EXTENDED-RELEASE)
     Route: 065
  3. ALCOHOL [Suspect]
     Active Substance: ALCOHOL
     Indication: Product used for unknown indication
     Dosage: UNK
     Route: 065

REACTIONS (14)
  - Pneumonia [Unknown]
  - Bronchial secretion retention [Unknown]
  - Sepsis [Unknown]
  - Acute kidney injury [Unknown]
  - Dysphagia [Unknown]
  - Respiratory failure [Unknown]
  - Drug withdrawal syndrome [Unknown]
  - Bradycardia [Unknown]
  - Torsade de pointes [Unknown]
  - Tracheostomy [Unknown]
  - Gastrointestinal tube insertion [Unknown]
  - Endotracheal intubation [Unknown]
  - Resuscitation [Unknown]
  - Haemodialysis [Unknown]
